FAERS Safety Report 15456302 (Version 1)
Quarter: 2018Q3

REPORT INFORMATION
  Report Type: Spontaneous
  Country: US (occurrence: US)
  Receive Date: 20180928
  Receipt Date: 20180928
  Transmission Date: 20181010
  Serious: Yes (Other)
  Sender: FDA-Public Use
  Company Number: None

PATIENT
  Sex: Female

DRUGS (1)
  1. FENTANYL TRANSDERMAL SYSTEM [Suspect]
     Active Substance: FENTANYL
     Indication: PAIN
     Dosage: MCG/HOUR;QUANTITY:5 PATCH(ES);OTHER FREQUENCY:1 EVERY 3 DAYS;?
     Route: 062

REACTIONS (5)
  - Pain [None]
  - Product adhesion issue [None]
  - Chills [None]
  - Product quality issue [None]
  - Withdrawal syndrome [None]
